FAERS Safety Report 12065374 (Version 1)
Quarter: 2016Q1

REPORT INFORMATION
  Report Type: Spontaneous
  Country: US (occurrence: US)
  Receive Date: 20160210
  Receipt Date: 20160210
  Transmission Date: 20160526
  Serious: No
  Sender: FDA-Public Use
  Company Number: US-ALLERGAN-1509836US

PATIENT
  Age: 52 Year
  Sex: Female
  Weight: 62.8 kg

DRUGS (3)
  1. BOTOX [Suspect]
     Active Substance: ONABOTULINUMTOXINA
     Indication: MIGRAINE
     Dosage: UNK, SINGLE
     Route: 030
     Dates: start: 20150519, end: 20150519
  2. TERBINAFINE. [Concomitant]
     Active Substance: TERBINAFINE
     Dosage: 250 MG, QD
     Route: 048
  3. TOPAMAX [Concomitant]
     Active Substance: TOPIRAMATE
     Indication: MIGRAINE
     Dosage: 50 MG, UNK
     Route: 048

REACTIONS (5)
  - Headache [Recovering/Resolving]
  - Malaise [Recovering/Resolving]
  - Rash [Recovering/Resolving]
  - Urticaria [Recovering/Resolving]
  - Injection site bruising [Recovering/Resolving]

NARRATIVE: CASE EVENT DATE: 20150519
